FAERS Safety Report 6997455-5 (Version None)
Quarter: 2010Q3

REPORT INFORMATION
  Report Type: 
  Country: None (occurrence: None)
  Receive Date: 20100918
  Receipt Date: 20091015
  Transmission Date: 20110219
  Serious: No
  Sender: FDA-Public Use
  Company Number: US-WYE-H11708309

PATIENT
  Age: 71 Year
  Sex: Female
  Weight: 55.84 kg

DRUGS (4)
  1. EFFEXOR XR [Suspect]
     Indication: DEPRESSION
     Route: 048
     Dates: start: 20060101
  2. EFFEXOR XR [Suspect]
     Indication: ANXIETY
  3. LIPITOR [Concomitant]
  4. VERAPAMIL [Concomitant]

REACTIONS (7)
  - CONSTIPATION [None]
  - FLUSHING [None]
  - INSOMNIA [None]
  - NIGHT SWEATS [None]
  - SOMNOLENCE [None]
  - STRESS URINARY INCONTINENCE [None]
  - WEIGHT INCREASED [None]
